FAERS Safety Report 4581239-1 (Version None)
Quarter: 2005Q1

REPORT INFORMATION
  Report Type: 
  Country: None (occurrence: None)
  Receive Date: 20050214
  Receipt Date: 20040904
  Transmission Date: 20050727
  Serious: No
  Sender: FDA-Public Use
  Company Number: US-GLAXOSMITHKLINE-A0525021A

PATIENT
  Age: 65 Year
  Sex: Female
  Weight: 90.9 kg

DRUGS (4)
  1. LAMICTAL [Suspect]
     Indication: BIPOLAR DISORDER
     Route: 048
  2. FLUOXETINE [Concomitant]
     Dosage: 80MG PER DAY
     Route: 065
  3. CLONAZEPAM [Concomitant]
     Dosage: .5MG PER DAY
     Route: 065
  4. GABAPENTIN [Concomitant]
     Dosage: 900MG AT NIGHT
     Route: 065
     Dates: start: 20010101

REACTIONS (2)
  - DRUG INEFFECTIVE [None]
  - IRRITABILITY [None]
